FAERS Safety Report 5440841-5 (Version None)
Quarter: 2007Q3

REPORT INFORMATION
  Report Type: 
  Country: None (occurrence: None)
  Receive Date: 20070731
  Receipt Date: 20070523
  Transmission Date: 20080115
  Serious: No
  Sender: FDA-Public Use
  Company Number: US200705006263

PATIENT
  Age: 66 Year
  Sex: Male

DRUGS (2)
  1. BYETTA [Suspect]
     Indication: TYPE 2 DIABETES MELLITUS
     Dosage: 5 UG, 2/D SC;  10UG, 2/D  SC
     Route: 058
     Dates: start: 20060101, end: 20060101
  2. EXENATIDE [Concomitant]

REACTIONS (2)
  - BACK PAIN [None]
  - WEIGHT DECREASED [None]
